FAERS Safety Report 7648957-X (Version None)
Quarter: 2011Q3

REPORT INFORMATION
  Report Type: 
  Country: None (occurrence: None)
  Receive Date: 20110802
  Receipt Date: 20110719
  Transmission Date: 20111222
  Serious: Yes (Hospitalization, Other)
  Sender: FDA-Public Use
  Company Number: DE-PAR PHARMACEUTICAL, INC-2011SCPR003142

PATIENT

DRUGS (12)
  1. CLOPIDOGREL [Concomitant]
     Indication: PERIPHERAL VASCULAR DISORDER
     Dosage: UNK, UNKNOWN
     Route: 048
  2. ACTRAPID                           /00646001/ [Concomitant]
     Dosage: TOTAL DAILY DOSE 52
     Route: 065
     Dates: start: 20110118
  3. ACTRAPID                           /00646001/ [Concomitant]
     Dosage: TOTAL DAILY DOSE 39
     Route: 065
     Dates: start: 20100823, end: 20100903
  4. ACTRAPID                           /00646001/ [Concomitant]
     Indication: DIABETES MELLITUS
     Dosage: TOTAL DAILY DOSE 48
     Route: 065
     Dates: start: 20090616, end: 20100822
  5. ASPIRIN [Concomitant]
     Indication: PERIPHERAL VASCULAR DISORDER
     Dosage: UNK, UNKNOWN
     Route: 048
  6. LANTUS [Concomitant]
     Dosage: TOTAL DAILY DOSE 52
     Route: 065
     Dates: start: 20100906
  7. CLOPIDOGREL [Concomitant]
     Indication: PROPHYLAXIS
  8. LANTUS [Concomitant]
     Indication: DIABETES MELLITUS
     Dosage: TOTAL DAILY DOSE 52
     Route: 065
     Dates: start: 20100323, end: 20100822
  9. ASPIRIN [Concomitant]
     Indication: PROPHYLAXIS
  10. CAPTOPRIL [Suspect]
     Indication: HYPERTENSION
     Dosage: 25 MG DAILY
     Route: 048
  11. ACTRAPID                           /00646001/ [Concomitant]
     Dosage: TOTAL DAILY DOSE 45
     Route: 065
     Dates: start: 20100904, end: 20110117
  12. LANTUS [Concomitant]
     Dosage: TOTAL DAILY DOSE 42
     Route: 065
     Dates: start: 20100823, end: 20100905

REACTIONS (1)
  - IN-STENT ARTERIAL RESTENOSIS [None]
